FAERS Safety Report 13673436 (Version 1)
Quarter: 2017Q2

REPORT INFORMATION
  Report Type: Spontaneous
  Country: US (occurrence: US)
  Receive Date: 20170621
  Receipt Date: 20170621
  Transmission Date: 20170830
  Serious: No
  Sender: FDA-Public Use
  Company Number: US-TEVA-667978USA

PATIENT
  Sex: Female
  Weight: 74.91 kg

DRUGS (6)
  1. SPIRONOLACTONE W/HYDROCHLOROTHIAZIDE [Concomitant]
     Active Substance: HYDROCHLOROTHIAZIDE\SPIRONOLACTONE
     Dosage: 25 MILLIGRAM DAILY;
  2. ATENOLOL. [Concomitant]
     Active Substance: ATENOLOL
     Dosage: 25 MILLIGRAM DAILY;
  3. FELODIPINE. [Concomitant]
     Active Substance: FELODIPINE
     Dosage: 5 MILLIGRAM DAILY;
  4. SYNTHROID [Concomitant]
     Active Substance: LEVOTHYROXINE SODIUM
     Dosage: 1.12 MILLIGRAM DAILY;
  5. SURMONTIL [Suspect]
     Active Substance: TRIMIPRAMINE MALEATE
     Indication: ANXIETY
     Dosage: 100 MILLIGRAM DAILY; AT NIGHT
     Dates: start: 20160531
  6. SURMONTIL [Suspect]
     Active Substance: TRIMIPRAMINE MALEATE
     Indication: SLEEP DISORDER

REACTIONS (3)
  - Hot flush [Unknown]
  - Skin burning sensation [Recovering/Resolving]
  - Product use in unapproved indication [Unknown]
